FAERS Safety Report 23668533 (Version 1)
Quarter: 2024Q1

REPORT INFORMATION
  Report Type: Spontaneous
  Country: CH (occurrence: CH)
  Receive Date: 20240325
  Receipt Date: 20240325
  Transmission Date: 20240410
  Serious: Yes (Hospitalization)
  Sender: FDA-Public Use
  Company Number: None

PATIENT
  Age: 47 Year
  Sex: Female

DRUGS (17)
  1. CLONAZEPAM [Suspect]
     Active Substance: CLONAZEPAM
     Dosage: UNDETERMINED QUANTITIES
     Route: 048
     Dates: start: 20231210, end: 20231210
  2. CLONAZEPAM [Suspect]
     Active Substance: CLONAZEPAM
     Dosage: BID, IN EVENING?DAILY DOSE: 4 GRAM
  3. QUETIAPINE [Suspect]
     Active Substance: QUETIAPINE
     Dosage: UNDETERMINED QUANTITIES
     Route: 048
     Dates: start: 20231210, end: 20231210
  4. QUETIAPINE [Suspect]
     Active Substance: QUETIAPINE
     Dosage: DAILY DOSE: 50 MILLIGRAM
  5. QUETIAPINE [Suspect]
     Active Substance: QUETIAPINE
     Dosage: AT BEDTIME?DAILY DOSE: 300 MILLIGRAM
  6. FLURAZEPAM HYDROCHLORIDE [Suspect]
     Active Substance: FLURAZEPAM HYDROCHLORIDE
     Dosage: UNDETERMINED QUANTITIES
     Dates: start: 20231210, end: 20231210
  7. FLURAZEPAM HYDROCHLORIDE [Suspect]
     Active Substance: FLURAZEPAM HYDROCHLORIDE
     Dosage: AT BEDTIME?DAILY DOSE: 30 MILLIGRAM
  8. VENLAFAXINE [Concomitant]
     Active Substance: VENLAFAXINE HYDROCHLORIDE
     Dosage: THE MORNING?DAILY DOSE: 150 MILLIGRAM
  9. VENLAFAXINE [Concomitant]
     Active Substance: VENLAFAXINE HYDROCHLORIDE
     Dosage: THE EVENING?DAILY DOSE: 75 MILLIGRAM
  10. EUTHYROX [Concomitant]
     Active Substance: LEVOTHYROXINE SODIUM
     Dosage: FROM MONDAY TO FRIDAY?DAILY DOSE: 75 MICROGRAM
  11. EUTHYROX [Concomitant]
     Active Substance: LEVOTHYROXINE SODIUM
     Dosage: THE WEEKEND?DAILY DOSE: 100 MICROGRAM
  12. EZETIMIBE [Concomitant]
     Active Substance: EZETIMIBE
     Dosage: DAILY DOSE: 10 MILLIGRAM
  13. ROSUVASTATIN [Concomitant]
     Active Substance: ROSUVASTATIN
     Dosage: DAILY DOSE: 20 MILLIGRAM
  14. METFORMIN [Concomitant]
     Active Substance: METFORMIN HYDROCHLORIDE
     Dosage: DAILY DOSE: 2 GRAM
  15. OZEMPIC [Concomitant]
     Active Substance: SEMAGLUTIDE
  16. MIDODRINE HYDROCHLORIDE [Concomitant]
     Active Substance: MIDODRINE HYDROCHLORIDE
     Dosage: DAILY DOSE: 7.5 MILLIGRAM
  17. PREGABALIN [Concomitant]
     Active Substance: PREGABALIN
     Dosage: DAILY DOSE: 300 MILLIGRAM

REACTIONS (5)
  - Depressed level of consciousness [Recovered/Resolved]
  - Intentional overdose [Recovered/Resolved]
  - Oxygen saturation decreased [Recovered/Resolved]
  - Hypotension [Recovered/Resolved]
  - Drug interaction [Recovered/Resolved]

NARRATIVE: CASE EVENT DATE: 20231210
